FAERS Safety Report 9154682 (Version 1)
Quarter: 2013Q1

REPORT INFORMATION
  Report Type: Spontaneous
  Country: US (occurrence: None)
  Receive Date: 20130130
  Receipt Date: 20130130
  Transmission Date: 20140127
  Serious: Yes (Hospitalization)
  Sender: FDA-Public Use
  Company Number: None

PATIENT
  Age: 68 Year
  Sex: Female
  Weight: 81.8 kg

DRUGS (3)
  1. MOZOBIL AMD [Suspect]
     Dosage: DAYS 1-5
     Route: 058
     Dates: start: 20130107, end: 20130111
  2. AZACITIDINE [Suspect]
     Dosage: DAYS 1-5
     Route: 058
     Dates: start: 20130107, end: 20130111
  3. G-CSF [Suspect]
     Indication: MYELODYSPLASTIC SYNDROME
     Dates: start: 20130107, end: 20130111

REACTIONS (1)
  - Febrile neutropenia [None]
